FAERS Safety Report 5048803-7 (Version None)
Quarter: 2006Q3

REPORT INFORMATION
  Report Type: 
  Country: None (occurrence: None)
  Receive Date: 20060706
  Receipt Date: 20060620
  Transmission Date: 20061208
  Serious: Yes (Hospitalization)
  Sender: FDA-Public Use
  Company Number: 2006RR-02727

PATIENT
  Age: 66 Year
  Sex: Female

DRUGS (4)
  1. FLUOXETINE [Suspect]
     Dosage: 60 MG
  2. TRIFLUOPERAZINE(TRIFLUOPERAZINE) [Suspect]
     Dosage: 20 MG
  3. LORAZEPAM [Suspect]
     Dosage: 60 MG
  4. TRANYLCYPROMINE (TRANYLCYPROMINE) [Concomitant]
     Dosage: 100 MG

REACTIONS (5)
  - COMA [None]
  - EYE MOVEMENT DISORDER [None]
  - MULTIPLE DRUG OVERDOSE INTENTIONAL [None]
  - NEUROLEPTIC MALIGNANT SYNDROME [None]
  - SEROTONIN SYNDROME [None]
